FAERS Safety Report 16657195 (Version 12)
Quarter: 2021Q2

REPORT INFORMATION
  Report Type: Report from Study
  Country: None (occurrence: NL)
  Receive Date: 20190801
  Receipt Date: 20210418
  Transmission Date: 20210716
  Serious: Yes (Hospitalization)
  Sender: FDA-Public Use
  Company Number: NL-ABBVIE-19S-114-2775715-00

PATIENT
  Age: 82 Year
  Sex: Female
  Weight: 44 kg

DRUGS (14)
  1. DUODOPA [Suspect]
     Active Substance: CARBIDOPA\LEVODOPA
     Dosage: MD: 8.0ML, CD: 3.0ML/H, ED: 3.0ML
     Route: 050
     Dates: start: 2020
  2. MOVICOLON [Concomitant]
     Active Substance: POLYETHYLENE GLYCOL 3350\POTASSIUM CHLORIDE\SODIUM BICARBONATE\SODIUM CHLORIDE
     Indication: ABNORMAL FAECES
  3. MADOPAR HBS [Concomitant]
     Active Substance: BENSERAZIDE HYDROCHLORIDE\LEVODOPA
     Indication: PARKINSON^S DISEASE
     Route: 048
     Dates: end: 20200101
  4. DUODOPA [Suspect]
     Active Substance: CARBIDOPA\LEVODOPA
     Dosage: MD: 8.0, CD: 2.9, ED: 3.0; 16 HOUR ADMINISTRATION
     Route: 050
     Dates: start: 20200808, end: 2020
  5. VITAMIN B12 [Concomitant]
     Active Substance: CYANOCOBALAMIN
     Indication: ANAEMIA
  6. OXYCODONE [Concomitant]
     Active Substance: OXYCODONE
     Indication: PRODUCT USED FOR UNKNOWN INDICATION
  7. DUODOPA [Suspect]
     Active Substance: CARBIDOPA\LEVODOPA
     Indication: PARKINSON^S DISEASE
     Dosage: MD: 8.0, CD: 2.7, ED: 3.0; 16 HOUR ADMINISTRATION
     Route: 050
     Dates: start: 20120808
  8. FUMARATE DISODIUM [Concomitant]
     Active Substance: DISODIUM FUMARATE
     Indication: ANAEMIA
  9. MADOPAR DISPER [Suspect]
     Active Substance: BENSERAZIDE HYDROCHLORIDE\LEVODOPA
     Indication: PRODUCT USED FOR UNKNOWN INDICATION
     Route: 065
     Dates: start: 20200101
  10. LAXANS [Concomitant]
     Indication: ABNORMAL FAECES
  11. FENTANYL. [Concomitant]
     Active Substance: FENTANYL
     Indication: PAIN
  12. LEVODOPA [Concomitant]
     Active Substance: LEVODOPA
     Indication: PRODUCT USED FOR UNKNOWN INDICATION
  13. CANESTEN [Concomitant]
     Active Substance: CLOTRIMAZOLE
     Indication: STOMA COMPLICATION
  14. MACROGOL [Concomitant]
     Active Substance: POLYETHYLENE GLYCOLS
     Indication: ABNORMAL FAECES

REACTIONS (49)
  - Medical device removal [Not Recovered/Not Resolved]
  - Stoma site reaction [Not Recovered/Not Resolved]
  - Weight decreased [Not Recovered/Not Resolved]
  - Stoma site reaction [Recovered/Resolved]
  - On and off phenomenon [Not Recovered/Not Resolved]
  - Stoma complication [Recovering/Resolving]
  - Dyskinesia [Not Recovered/Not Resolved]
  - Wheelchair user [Unknown]
  - General physical health deterioration [Recovering/Resolving]
  - Fatigue [Not Recovered/Not Resolved]
  - Tremor [Not Recovered/Not Resolved]
  - Nausea [Recovered/Resolved]
  - Abdominal distension [Not Recovered/Not Resolved]
  - Stoma site extravasation [Recovering/Resolving]
  - Vomiting [Unknown]
  - Device leakage [Recovering/Resolving]
  - Hospitalisation [Recovered/Resolved]
  - Loss of personal independence in daily activities [Not Recovered/Not Resolved]
  - Muscle spasms [Unknown]
  - Anaemia [Not Recovered/Not Resolved]
  - Device issue [Unknown]
  - Muscle spasms [Not Recovered/Not Resolved]
  - Stoma site discharge [Recovered/Resolved]
  - Speech disorder [Not Recovered/Not Resolved]
  - Fine motor skill dysfunction [Not Recovered/Not Resolved]
  - Feeling abnormal [Not Recovered/Not Resolved]
  - Decreased appetite [Recovering/Resolving]
  - Hallucination [Recovered/Resolved]
  - Nausea [Not Recovered/Not Resolved]
  - Scoliosis [Not Recovered/Not Resolved]
  - Scoliosis radiation [Unknown]
  - Device dislocation [Recovered/Resolved]
  - Stoma site odour [Recovered/Resolved]
  - Pain [Recovered/Resolved]
  - Enteral nutrition [Unknown]
  - Fibroma [Recovering/Resolving]
  - Bedridden [Not Recovered/Not Resolved]
  - Restlessness [Not Recovered/Not Resolved]
  - Weight decreased [Recovered/Resolved]
  - Muscle rigidity [Not Recovered/Not Resolved]
  - Therapeutic product effect incomplete [Recovered/Resolved]
  - Feeding disorder [Recovered/Resolved]
  - Gait inability [Not Recovered/Not Resolved]
  - Abnormal faeces [Recovered/Resolved]
  - Device connection issue [Recovered/Resolved]
  - Stoma site erythema [Recovered/Resolved]
  - Vomiting [Recovering/Resolving]
  - Diarrhoea [Not Recovered/Not Resolved]
  - Stoma site erythema [Unknown]

NARRATIVE: CASE EVENT DATE: 201901
